FAERS Safety Report 13886288 (Version 1)
Quarter: 2017Q3

REPORT INFORMATION
  Report Type: Spontaneous
  Country: FR (occurrence: FR)
  Receive Date: 20170821
  Receipt Date: 20170821
  Transmission Date: 20171127
  Serious: Yes (Hospitalization, Other)
  Sender: FDA-Public Use
  Company Number: FR-PFIZER INC-2017357578

PATIENT
  Age: 53 Year
  Sex: Male

DRUGS (1)
  1. PRODILANTIN [Suspect]
     Active Substance: FOSPHENYTOIN SODIUM
     Indication: NEURALGIA
     Dosage: UNK
     Route: 041

REACTIONS (6)
  - Overdose [Unknown]
  - Dizziness [Recovered/Resolved]
  - Hyperaesthesia [Unknown]
  - Hyponatraemia [Unknown]
  - Product use in unapproved indication [Unknown]
  - Ataxia [Recovered/Resolved]

NARRATIVE: CASE EVENT DATE: 20170801
